FAERS Safety Report 11224942 (Version 1)
Quarter: 2015Q2

REPORT INFORMATION
  Report Type: Spontaneous
  Country: JP (occurrence: JP)
  Receive Date: 20150629
  Receipt Date: 20150629
  Transmission Date: 20150821
  Serious: Yes (Death, Hospitalization, Other)
  Sender: FDA-Public Use
  Company Number: JP-PFIZER INC-2015211195

PATIENT
  Age: 42 Year
  Sex: Female
  Weight: 49 kg

DRUGS (23)
  1. CAMPTO [Suspect]
     Active Substance: IRINOTECAN
     Dosage: 250 MG, 1X/DAY
     Route: 041
     Dates: start: 20140416, end: 20140416
  2. ELPLAT [Suspect]
     Active Substance: OXALIPLATIN
     Dosage: 120 MG, 1X/DAY
     Route: 041
     Dates: start: 20140217, end: 20140217
  3. LEVOFOLINATE [Suspect]
     Active Substance: LEVOLEUCOVORIN CALCIUM
     Dosage: 275 MG, 1X/DAY
     Route: 041
     Dates: start: 20140416, end: 20140416
  4. CAMPTO [Suspect]
     Active Substance: IRINOTECAN
     Dosage: 250 MG, 1X/DAY
     Route: 041
     Dates: start: 20140507, end: 20140507
  5. ELPLAT [Suspect]
     Active Substance: OXALIPLATIN
     Dosage: 120 MG, 1X/DAY
     Route: 041
     Dates: start: 20140326, end: 20140326
  6. CAMPTO [Suspect]
     Active Substance: IRINOTECAN
     Dosage: 250 MG, 1X/DAY
     Route: 041
     Dates: start: 20140326, end: 20140326
  7. ELPLAT [Suspect]
     Active Substance: OXALIPLATIN
     Dosage: 120 MG, 1X/DAY
     Route: 041
     Dates: start: 20140507, end: 20140507
  8. LEVOFOLINATE [Suspect]
     Active Substance: LEVOLEUCOVORIN CALCIUM
     Indication: PANCREATIC CARCINOMA
     Dosage: 275 MG, 1X/DAY
     Route: 041
     Dates: start: 20140203, end: 20140203
  9. 5-FU /00098801/ [Concomitant]
     Active Substance: FLUOROURACIL
     Indication: PANCREATIC CARCINOMA
     Dosage: 570 MG, CYCLIC
     Route: 040
     Dates: start: 20140203, end: 20140611
  10. ELPLAT [Suspect]
     Active Substance: OXALIPLATIN
     Indication: PANCREATIC CARCINOMA
     Dosage: 120 MG, 1X/DAY
     Route: 041
     Dates: start: 20140203, end: 20140203
  11. LEVOFOLINATE [Suspect]
     Active Substance: LEVOLEUCOVORIN CALCIUM
     Dosage: 275 MG, 1X/DAY
     Route: 041
     Dates: start: 20140217, end: 20140217
  12. 5-FU /00098801/ [Concomitant]
     Active Substance: FLUOROURACIL
     Dosage: 3400 MG/D1-2 CONTINUOUS INFUSION
     Route: 041
     Dates: start: 20140203, end: 20140611
  13. CAMPTO [Suspect]
     Active Substance: IRINOTECAN
     Indication: PANCREATIC CARCINOMA
     Dosage: 250 MG, 1X/DAY
     Route: 041
     Dates: start: 20140203, end: 20140203
  14. ELPLAT [Suspect]
     Active Substance: OXALIPLATIN
     Dosage: 120 MG, 1X/DAY
     Route: 041
     Dates: start: 20140611, end: 20140611
  15. LEVOFOLINATE [Suspect]
     Active Substance: LEVOLEUCOVORIN CALCIUM
     Dosage: 275 MG, 1X/DAY
     Route: 041
     Dates: start: 20140326, end: 20140326
  16. LEVOFOLINATE [Suspect]
     Active Substance: LEVOLEUCOVORIN CALCIUM
     Dosage: 275 MG, 1X/DAY
     Route: 041
     Dates: start: 20140507, end: 20140507
  17. CAMPTO [Suspect]
     Active Substance: IRINOTECAN
     Dosage: 250 MG, 1X/DAY
     Route: 041
     Dates: start: 20140217, end: 20140217
  18. CAMPTO [Suspect]
     Active Substance: IRINOTECAN
     Dosage: 250 MG, 1X/DAY
     Route: 041
     Dates: start: 20140312, end: 20140312
  19. CAMPTO [Suspect]
     Active Substance: IRINOTECAN
     Dosage: 250 MG, 1X/DAY
     Route: 041
     Dates: start: 20140611, end: 20140611
  20. ELPLAT [Suspect]
     Active Substance: OXALIPLATIN
     Dosage: 120 MG, 1X/DAY
     Route: 041
     Dates: start: 20140312, end: 20140312
  21. LEVOFOLINATE [Suspect]
     Active Substance: LEVOLEUCOVORIN CALCIUM
     Dosage: 275 MG, 1X/DAY
     Route: 041
     Dates: start: 20140312, end: 20140312
  22. ELPLAT [Suspect]
     Active Substance: OXALIPLATIN
     Dosage: 120 MG, 1X/DAY
     Route: 041
     Dates: start: 20140416, end: 20140416
  23. LEVOFOLINATE [Suspect]
     Active Substance: LEVOLEUCOVORIN CALCIUM
     Dosage: 275 MG, 1X/DAY
     Route: 041
     Dates: start: 20140611, end: 20140611

REACTIONS (17)
  - Disease progression [Fatal]
  - Neutrophil count decreased [Recovered/Resolved]
  - Peripheral sensory neuropathy [Recovered/Resolved]
  - Pyrexia [Unknown]
  - Decreased appetite [Unknown]
  - Ascites [Unknown]
  - Nausea [Recovered/Resolved]
  - Infection [Unknown]
  - Pleural effusion [Unknown]
  - White blood cell count decreased [Recovered/Resolved]
  - Pancreatic carcinoma [Fatal]
  - Dyspnoea [Unknown]
  - Diarrhoea [Recovered/Resolved]
  - Hypokalaemia [Unknown]
  - Haemoglobin decreased [Unknown]
  - Fatigue [Unknown]
  - Blood bilirubin increased [Unknown]

NARRATIVE: CASE EVENT DATE: 20140221
